FAERS Safety Report 14700777 (Version 2)
Quarter: 2018Q1

REPORT INFORMATION
  Report Type: Spontaneous
  Country: CZ (occurrence: CZ)
  Receive Date: 20180330
  Receipt Date: 20180330
  Transmission Date: 20180509
  Serious: Yes (Other)
  Sender: FDA-Public Use
  Company Number: PHHY2018CZ048588

PATIENT
  Age: 46 Year
  Sex: Female
  Weight: 54 kg

DRUGS (3)
  1. CICLOSPORIN [Suspect]
     Active Substance: CYCLOSPORINE
     Indication: ENDOCRINE OPHTHALMOPATHY
     Dosage: UNK
     Route: 065
     Dates: start: 201606
  2. PREDNISONE. [Suspect]
     Active Substance: PREDNISONE
     Indication: ENDOCRINE OPHTHALMOPATHY
     Dosage: 40 MG, QD
     Route: 065
     Dates: start: 201602
  3. PREDNISONE. [Suspect]
     Active Substance: PREDNISONE
     Dosage: 20 MG, QD
     Route: 065

REACTIONS (13)
  - Osteoporosis [Unknown]
  - Bone marrow oedema [Unknown]
  - Gastrointestinal disorder [Unknown]
  - Lumbar vertebral fracture [Unknown]
  - Body height decreased [Unknown]
  - Kyphosis [Unknown]
  - Amenorrhoea [Unknown]
  - Spinal pain [Unknown]
  - Dyspnoea [Unknown]
  - Insomnia [Unknown]
  - Spinal cord compression [Unknown]
  - Product use in unapproved indication [Unknown]
  - Depression [Unknown]

NARRATIVE: CASE EVENT DATE: 2016
